FAERS Safety Report 4578147-9 (Version None)
Quarter: 2005Q1

REPORT INFORMATION
  Report Type: 
  Country: None (occurrence: None)
  Receive Date: 20050203
  Receipt Date: 20050203
  Transmission Date: 20050727
  Serious: Yes (Hospitalization)
  Sender: FDA-Public Use
  Company Number: None

PATIENT
  Age: 87 Year
  Sex: Female
  Weight: 48.9885 kg

DRUGS (6)
  1. AMANTADINE 100MG 2X A DAY [Suspect]
     Indication: PARKINSON'S DISEASE
     Dosage: 100MG 2X A DAY P.O.
     Route: 048
     Dates: start: 20020403, end: 20050117
  2. CIPRO [Suspect]
     Indication: URINARY TRACT INFECTION
     Dosage: 500 MG BID P.O.
     Route: 048
     Dates: start: 20050113, end: 20050114
  3. AMPICILLIN [Suspect]
     Dosage: PO 500MG TID
     Route: 048
     Dates: start: 20050114, end: 20050117
  4. DETROL [Concomitant]
  5. VASOTEC [Concomitant]
  6. SINEMET [Concomitant]

REACTIONS (4)
  - AGITATION [None]
  - CONFUSIONAL STATE [None]
  - CONVULSION [None]
  - URINARY TRACT INFECTION [None]
